FAERS Safety Report 13594301 (Version 6)
Quarter: 2017Q3

REPORT INFORMATION
  Report Type: Spontaneous
  Country: US (occurrence: US)
  Receive Date: 20170530
  Receipt Date: 20170705
  Transmission Date: 20171127
  Serious: No
  Sender: FDA-Public Use
  Company Number: US-PFIZER INC-2017236070

PATIENT
  Age: 49 Year
  Sex: Male

DRUGS (3)
  1. LIPITOR [Suspect]
     Active Substance: ATORVASTATIN CALCIUM
     Indication: BLOOD CHOLESTEROL INCREASED
     Dosage: 20 MG, 1X/DAY
     Route: 048
  2. HYPROMELLOSE [Suspect]
     Active Substance: HYPROMELLOSES
     Indication: HYPERTENSION
     Dosage: 10 MG, DAILY
     Route: 048
  3. LIPITOR [Suspect]
     Active Substance: ATORVASTATIN CALCIUM
     Dosage: 10 MG, DAILY (10 YEARS AGO AND AGAIN 2 MONTH)

REACTIONS (2)
  - Reaction to excipient [Recovered/Resolved]
  - Urticaria [Recovered/Resolved]
